FAERS Safety Report 14584058 (Version 1)
Quarter: 2018Q1

REPORT INFORMATION
  Report Type: Report from Study
  Country: US (occurrence: US)
  Receive Date: 20180228
  Receipt Date: 20180228
  Transmission Date: 20180509
  Serious: Yes (Hospitalization)
  Sender: FDA-Public Use
  Company Number: PHEH2018US007068

PATIENT
  Sex: Female

DRUGS (4)
  1. PRENATAL [Concomitant]
     Active Substance: VITAMINS
     Indication: FOETAL EXPOSURE DURING PREGNANCY
     Dosage: MATERNAL DOSE: UNKNOWN, TRIMESTER TAKEN: PERI LMP, FIRST, SECOND AND THIRD
     Route: 064
  2. VITAMIN D3 [Concomitant]
     Active Substance: CHOLECALCIFEROL
     Indication: FOETAL EXPOSURE DURING PREGNANCY
     Dosage: MATERNAL DOSE: UNKNOWN, TRIMESTER TAKEN: PERI LMP, FIRST, SECOND AND THIRD
     Route: 064
  3. TYLENOL [Concomitant]
     Active Substance: ACETAMINOPHEN
     Indication: FOETAL EXPOSURE DURING PREGNANCY
     Dosage: MATERNAL DOSE: PRN
     Route: 064
  4. GILENYA [Suspect]
     Active Substance: FINGOLIMOD HYDROCHLORIDE
     Indication: FOETAL EXPOSURE DURING PREGNANCY
     Dosage: MATERNAL DOSE: 0.5 MG, QD (TRIMESTER TAKEN: PERI LMP, FIRST)
     Route: 064

REACTIONS (2)
  - Influenza [Recovered/Resolved]
  - Foetal exposure during pregnancy [Unknown]
